FAERS Safety Report 8798219 (Version 2)
Quarter: 2012Q4

REPORT INFORMATION
  Report Type: 
  Country: US (occurrence: US)
  Receive Date: 20120920
  Receipt Date: 20121127
  Transmission Date: 20130627
  Serious: Yes (Death)
  Sender: FDA-Public Use
  Company Number: US-ROCHE-1102891

PATIENT
  Sex: Male
  Weight: 56.75 kg

DRUGS (9)
  1. AVASTIN [Suspect]
     Indication: LUNG NEOPLASM MALIGNANT
     Route: 042
     Dates: start: 20051027
  2. AVASTIN [Suspect]
     Indication: METASTASES TO PLEURA
     Route: 042
     Dates: start: 20051110
  3. AVASTIN [Suspect]
     Route: 042
     Dates: start: 20051123
  4. AVASTIN [Suspect]
     Route: 042
     Dates: start: 20060317
  5. AVASTIN [Suspect]
     Route: 042
     Dates: start: 20060407
  6. AVASTIN [Suspect]
     Route: 042
     Dates: start: 20050912, end: 20051201
  7. TAXOL [Concomitant]
     Route: 065
     Dates: start: 20051027
  8. ALIMTA [Concomitant]
     Route: 065
     Dates: start: 20060317, end: 20080407
  9. CARBOPLATIN [Concomitant]

REACTIONS (1)
  - Lung neoplasm malignant [Fatal]
